FAERS Safety Report 8228429-4 (Version None)
Quarter: 2012Q1

REPORT INFORMATION
  Report Type: 
  Country: None (occurrence: None)
  Receive Date: 20120322
  Receipt Date: 20120117
  Transmission Date: 20120608
  Serious: No
  Sender: FDA-Public Use
  Company Number: US-BAUSCH-2012BL000348

PATIENT
  Age: 66 Year
  Sex: Female

DRUGS (3)
  1. BESIVANCE [Suspect]
     Indication: POSTOPERATIVE CARE
     Route: 047
     Dates: start: 20120113
  2. LOTEMAX [Concomitant]
  3. REFRESH [Concomitant]

REACTIONS (1)
  - EYE SWELLING [None]
